FAERS Safety Report 9549888 (Version 1)
Quarter: 2013Q3

REPORT INFORMATION
  Report Type: Spontaneous
  Country: JP (occurrence: JP)
  Receive Date: 20130924
  Receipt Date: 20130924
  Transmission Date: 20140515
  Serious: No
  Sender: FDA-Public Use
  Company Number: JP-B.I. PHARMACEUTICALS,INC./RIDGEFIELD-2013-BI-29377NB

PATIENT
  Age: 60 Year
  Sex: Male

DRUGS (6)
  1. TRAZENTA [Suspect]
     Dosage: 5 MG
     Route: 048
     Dates: start: 20130716, end: 20130828
  2. SUREPOST [Suspect]
     Dosage: 1.5 MG
     Route: 048
     Dates: start: 20130716, end: 20130828
  3. METGLUCO [Concomitant]
     Dosage: 1500 MG
     Route: 048
     Dates: end: 20130904
  4. BAYASPIRIN [Concomitant]
     Dosage: 100 MG
     Route: 048
     Dates: end: 20130904
  5. MICARDIS [Concomitant]
     Dosage: 20 MG
     Route: 048
     Dates: end: 20130904
  6. CRESTOR [Concomitant]
     Dosage: 2.5 MG
     Route: 048
     Dates: end: 20130904

REACTIONS (1)
  - Drug eruption [Unknown]
